FAERS Safety Report 13260335 (Version 1)
Quarter: 2017Q1

REPORT INFORMATION
  Report Type: Spontaneous
  Country: US (occurrence: US)
  Receive Date: 20170222
  Receipt Date: 20170222
  Transmission Date: 20170428
  Serious: No
  Sender: FDA-Public Use
  Company Number: US-BAYER-2017-023171

PATIENT
  Sex: Female
  Weight: 58 kg

DRUGS (9)
  1. PERPHENAZINE. [Concomitant]
     Active Substance: PERPHENAZINE
  2. AMITRIPTYLINE [Concomitant]
     Active Substance: AMITRIPTYLINE
  3. MIRALAX [Suspect]
     Active Substance: POLYETHYLENE GLYCOL 3350
     Indication: GASTROINTESTINAL DISORDER
     Dosage: 1 DF, QOD
     Route: 048
     Dates: end: 20170204
  4. STOOL SOFTENER [Concomitant]
  5. CITALOPRAM [Concomitant]
     Active Substance: CITALOPRAM HYDROBROMIDE
  6. ASPIRIN. [Concomitant]
     Active Substance: ASPIRIN
  7. MULTIVITAMIN [Concomitant]
     Active Substance: VITAMINS
  8. PRAVASTATIN. [Concomitant]
     Active Substance: PRAVASTATIN
  9. ARICEPT [Concomitant]
     Active Substance: DONEPEZIL HYDROCHLORIDE

REACTIONS (3)
  - Circumstance or information capable of leading to medication error [Unknown]
  - Diarrhoea [Recovered/Resolved]
  - Product use issue [Unknown]
